FAERS Safety Report 5750911-X (Version None)
Quarter: 2008Q2

REPORT INFORMATION
  Report Type: 
  Country: None (occurrence: None)
  Receive Date: 20080528
  Receipt Date: 20080522
  Transmission Date: 20081010
  Serious: Yes (Hospitalization)
  Sender: FDA-Public Use
  Company Number: ES-WATSON-2008-03159

PATIENT
  Age: 41 Year
  Sex: Male

DRUGS (1)
  1. LIDOCAINE HYDROCHLORIDE 1% WITH EPINEPHRINE (WATSON LABORATORIES) [Suspect]
     Indication: ANAPHYLACTIC REACTION
     Dosage: 0.5 MG, SINGLE
     Route: 058
     Dates: start: 20070101, end: 20070101

REACTIONS (1)
  - ACUTE MYOCARDIAL INFARCTION [None]
